FAERS Safety Report 20353659 (Version 1)
Quarter: 2022Q1

REPORT INFORMATION
  Report Type: Report from Study
  Country: US (occurrence: US)
  Receive Date: 20220120
  Receipt Date: 20220120
  Transmission Date: 20220423
  Serious: Yes (Hospitalization, Other)
  Sender: FDA-Public Use
  Company Number: US-VALIDUS PHARMACEUTICALS LLC-US-VDP-2022-014941

PATIENT

DRUGS (10)
  1. BUMEX [Suspect]
     Active Substance: BUMETANIDE
     Indication: Product used for unknown indication
     Dosage: UNK
     Route: 065
  2. BUMEX [Suspect]
     Active Substance: BUMETANIDE
     Dosage: UNK, DECREASED
     Route: 065
  3. H.P. ACTHAR [Suspect]
     Active Substance: CORTICOTROPIN
     Indication: Systemic lupus erythematosus
     Dosage: 80 UNIT, 2 TIMES/WK, ENZYME UNIT PER MILLILITRE
     Route: 058
     Dates: start: 20210426, end: 2021
  4. H.P. ACTHAR [Suspect]
     Active Substance: CORTICOTROPIN
     Indication: Rheumatoid arthritis
     Dosage: 80 UNIT, 2 TIMES/WK, ENZYME UNIT PER MILLILITRE
     Route: 058
     Dates: start: 2021, end: 2021
  5. H.P. ACTHAR [Suspect]
     Active Substance: CORTICOTROPIN
     Dosage: 40 UNIT, ONCE PER WEEK, ENZYME UNIT PER MILLILITRE
     Route: 058
     Dates: start: 2021
  6. SPIRONOLACTONE [Suspect]
     Active Substance: SPIRONOLACTONE
     Indication: Product used for unknown indication
     Dosage: UNK
     Route: 065
  7. SPIRONOLACTONE [Suspect]
     Active Substance: SPIRONOLACTONE
     Dosage: UNK, DECREASED
     Route: 065
  8. PREDNISONE [Suspect]
     Active Substance: PREDNISONE
     Indication: Product used for unknown indication
     Dosage: UNK
     Route: 065
  9. POTASSIUM [Concomitant]
     Active Substance: POTASSIUM
     Indication: Product used for unknown indication
     Dosage: UNK
     Route: 065
  10. BENLYSTA [Concomitant]
     Active Substance: BELIMUMAB
     Indication: Product used for unknown indication
     Dosage: UNK
     Route: 065

REACTIONS (33)
  - Cardiac failure congestive [Unknown]
  - Coronary artery disease [Unknown]
  - Cellulitis [Not Recovered/Not Resolved]
  - Catheterisation cardiac [Unknown]
  - Renal impairment [Unknown]
  - COVID-19 [Not Recovered/Not Resolved]
  - Cold sweat [Unknown]
  - Nervousness [Unknown]
  - Confusional state [Unknown]
  - Stress [Unknown]
  - Dyspnoea [Not Recovered/Not Resolved]
  - Chest discomfort [Not Recovered/Not Resolved]
  - Weight decreased [Unknown]
  - Micturition urgency [Not Recovered/Not Resolved]
  - Renal pain [Not Recovered/Not Resolved]
  - Anxiety [Unknown]
  - Oral infection [Not Recovered/Not Resolved]
  - Injection site bruising [Not Recovered/Not Resolved]
  - Injection site mass [Unknown]
  - Injection site pain [Unknown]
  - Injection site induration [Unknown]
  - Peripheral swelling [Not Recovered/Not Resolved]
  - Oedema peripheral [Not Recovered/Not Resolved]
  - Blood glucose increased [Recovering/Resolving]
  - Malaise [Unknown]
  - Product dose omission issue [Recovered/Resolved]
  - Product use in unapproved indication [Not Recovered/Not Resolved]
  - Hyperhidrosis [Unknown]
  - Nausea [Unknown]
  - Dizziness [Unknown]
  - Hypotension [Unknown]
  - Headache [Unknown]
  - Fatigue [Not Recovered/Not Resolved]

NARRATIVE: CASE EVENT DATE: 20210101
